FAERS Safety Report 4710789-X (Version None)
Quarter: 2005Q3

REPORT INFORMATION
  Report Type: 
  Country: None (occurrence: None)
  Receive Date: 20050711
  Receipt Date: 20030318
  Transmission Date: 20060218
  Serious: Yes (Hospitalization)
  Sender: FDA-Public Use
  Company Number: US-BRISTOL-MYERS SQUIBB COMPANY-12217014

PATIENT
  Age: 48 Year
  Sex: Male

DRUGS (6)
  1. EFAVIRENZ [Suspect]
     Indication: ACQUIRED IMMUNODEFICIENCY SYNDROME
     Dosage: STOPPED 08-MAR-2002, RESTARTED 05-APR-2003, STOPPED 13-APR-2003, RESTARTED 25-APR-2003
     Route: 048
     Dates: start: 20010419
  2. ZERIT [Suspect]
     Indication: ACQUIRED IMMUNODEFICIENCY SYNDROME
     Route: 048
     Dates: start: 20011001, end: 20020308
  3. EPIVIR [Suspect]
     Indication: ACQUIRED IMMUNODEFICIENCY SYNDROME
     Dosage: STOPPED ON 08-MAR-2002, RESTARTED ON 05-APR-2003, DISCONTINUED ON 13-APR-2003 RESTARTED 25-APR-2003.
     Route: 048
     Dates: start: 20011001
  4. COMBIVIR [Suspect]
     Indication: ACQUIRED IMMUNODEFICIENCY SYNDROME
     Route: 048
     Dates: start: 20010419, end: 20010930
  5. DEPAKENE [Concomitant]
     Route: 048
  6. LASIX [Concomitant]
     Dosage: INTERRUPTED FROM 03/11/02 TO 03/13/02
     Route: 048
     Dates: start: 20020309

REACTIONS (6)
  - BLOOD URIC ACID INCREASED [None]
  - CHOLELITHIASIS [None]
  - DIZZINESS [None]
  - HAEMOGLOBIN DECREASED [None]
  - HEPATIC FUNCTION ABNORMAL [None]
  - HYPERLACTACIDAEMIA [None]
